FAERS Safety Report 5672738-X (Version None)
Quarter: 2008Q1

REPORT INFORMATION
  Report Type: 
  Country: None (occurrence: None)
  Receive Date: 20080319
  Receipt Date: 20070725
  Transmission Date: 20080703
  Serious: No
  Sender: FDA-Public Use
  Company Number: US-KINGPHARMUSA00001-K200700941

PATIENT

DRUGS (7)
  1. ALTACE [Suspect]
     Dosage: 10 MG, QD
     Route: 048
     Dates: start: 20060901
  2. FINASTERIDE [Suspect]
     Dosage: 5 MG, QD
     Route: 048
     Dates: start: 20061101
  3. FLOMAX   /00889901/ [Concomitant]
     Dosage: .4 MG, QD
  4. SIMVASTATIN [Concomitant]
     Dosage: 80 MG, QD
  5. CIALIS [Concomitant]
     Dosage: 20 MG, 4 TABS, Q3MON
  6. TOPROL-XL [Concomitant]
     Dosage: 50 MG, QD
  7. LEVOTHYROXINE SODIUM [Concomitant]
     Dosage: 112 MCG, QD

REACTIONS (1)
  - SKIN ODOUR ABNORMAL [None]
